FAERS Safety Report 16117190 (Version 2)
Quarter: 2019Q2

REPORT INFORMATION
  Report Type: Spontaneous
  Country: NL (occurrence: NL)
  Receive Date: 20190326
  Receipt Date: 20190403
  Transmission Date: 20190711
  Serious: Yes (Other)
  Sender: FDA-Public Use
  Company Number: NL-TEVA-2019-NL-1028927

PATIENT
  Age: 72 Year
  Sex: Female
  Weight: 70 kg

DRUGS (7)
  1. LEVERTRAAN 4 EETLEPELS [Concomitant]
  2. PROPYLTHIOURACIL 50, 3 X 1/8 [Concomitant]
  3. FLECAINIDE ACETAAT 2X50 [Concomitant]
     Dosage: 100 MILLIGRAM DAILY; 2X50
  4. FENPROCOUMON 3, 1/2 - 1, [Concomitant]
  5. DOXAZOSINE TABLET MET GEREGULEERDE AFGIFTE, 4 MG (MILLIGRAM) [Suspect]
     Active Substance: DOXAZOSIN MESYLATE
     Indication: HYPERTENSION
     Dosage: 1 DOSAGE FORMS DAILY;
     Dates: start: 20190118
  6. PERINDOPRIL 8 [Concomitant]
  7. AMLODIPINE 5 [Concomitant]

REACTIONS (9)
  - Constipation [Recovered/Resolved]
  - Dyspnoea [Recovered/Resolved]
  - Dysstasia [Recovered/Resolved]
  - Pollakiuria [Recovered/Resolved]
  - Palpitations [Recovered/Resolved]
  - Nasal congestion [Recovered/Resolved]
  - Presyncope [Recovered/Resolved]
  - Gastrointestinal pain [Recovered/Resolved]
  - Arrhythmia [Recovered/Resolved]

NARRATIVE: CASE EVENT DATE: 20190119
